FAERS Safety Report 23751542 (Version 1)
Quarter: 2024Q2

REPORT INFORMATION
  Report Type: Spontaneous
  Country: US (occurrence: US)
  Receive Date: 20240417
  Receipt Date: 20240417
  Transmission Date: 20240716
  Serious: No
  Sender: FDA-Public Use
  Company Number: US-AMGEN-USASP2024075566

PATIENT
  Sex: Female

DRUGS (1)
  1. XGEVA [Suspect]
     Active Substance: DENOSUMAB
     Indication: Invasive breast carcinoma
     Dosage: UNK (DOSE ORDERED: 120 MG)
     Route: 065

REACTIONS (1)
  - Tooth disorder [Unknown]
